FAERS Safety Report 8782261 (Version 2)
Quarter: 2013Q3

REPORT INFORMATION
  Report Type: Spontaneous
  Country: US (occurrence: US)
  Receive Date: 20120913
  Receipt Date: 20130918
  Transmission Date: 20140515
  Serious: No
  Sender: FDA-Public Use
  Company Number: US-ASTRAZENECA-2012SE64944

PATIENT
  Age: 56 Year
  Sex: Female
  Weight: 65.8 kg

DRUGS (4)
  1. SEROQUEL [Suspect]
     Indication: BIPOLAR DISORDER
     Route: 048
  2. NARCO [Concomitant]
  3. TAPAZOL [Concomitant]
  4. COMBIVENT [Concomitant]

REACTIONS (5)
  - Adverse event [Unknown]
  - Aggression [Unknown]
  - Anxiety [Unknown]
  - Insomnia [Unknown]
  - Drug dose omission [Unknown]
